FAERS Safety Report 9322762 (Version 6)
Quarter: 2014Q2

REPORT INFORMATION
  Report Type: Report from Study
  Country: PL (occurrence: PL)
  Receive Date: 20130601
  Receipt Date: 20140527
  Transmission Date: 20141212
  Serious: Yes (Hospitalization)
  Sender: FDA-Public Use
  Company Number: PL-ROCHE-1231066

PATIENT
  Age: 76 Year
  Sex: Female

DRUGS (5)
  1. VEMURAFENIB [Suspect]
     Indication: MALIGNANT MELANOMA
     Route: 048
     Dates: start: 20130405
  2. VEMURAFENIB [Suspect]
     Route: 048
     Dates: start: 20130419, end: 20130529
  3. AMLODIPINE [Concomitant]
     Route: 065
     Dates: start: 1994
  4. POTASSIUM CHLORIDE [Concomitant]
     Route: 065
     Dates: start: 20130419
  5. RAMIPRIL [Concomitant]
     Route: 065
     Dates: start: 1994

REACTIONS (1)
  - Hepatotoxicity [Recovered/Resolved]
